FAERS Safety Report 6669775-5 (Version None)
Quarter: 2010Q2

REPORT INFORMATION
  Report Type: 
  Country: None (occurrence: None)
  Receive Date: 20100406
  Receipt Date: 20100327
  Transmission Date: 20101027
  Serious: Yes (Hospitalization, Other)
  Sender: FDA-Public Use
  Company Number: GB-ABBOTT-10P-167-0634943-00

PATIENT
  Age: 47 Year
  Sex: Female

DRUGS (4)
  1. LEVOTHYROXINE SODIUM [Suspect]
     Indication: BASEDOW'S DISEASE
     Dates: start: 20070511
  2. LEVOTHYROXINE SODIUM [Suspect]
     Dates: start: 20070701
  3. PROPYLTHIOURACIL [Concomitant]
     Indication: HYPERTHYROIDISM
  4. PROPYLTHIOURACIL [Concomitant]

REACTIONS (2)
  - HYPERTHYROIDISM [None]
  - PSYCHOTIC DISORDER [None]
